FAERS Safety Report 11887538 (Version 1)
Quarter: 2016Q1

REPORT INFORMATION
  Report Type: Spontaneous
  Country: BR (occurrence: BR)
  Receive Date: 20160105
  Receipt Date: 20160105
  Transmission Date: 20160526
  Serious: Yes (Other)
  Sender: FDA-Public Use
  Company Number: PHHY2015BR157931

PATIENT
  Age: 51 Year
  Sex: Male
  Weight: 60 kg

DRUGS (5)
  1. BETADINE [Concomitant]
     Active Substance: POVIDONE-IODINE
     Indication: LABYRINTHITIS
  2. FORASEQ [Suspect]
     Active Substance: BUDESONIDE\FORMOTEROL FUMARATE
     Indication: BRONCHITIS CHRONIC
     Dosage: UNK (12/400 UG CAPSULE), UNK
     Route: 065
  3. BETADINE [Concomitant]
     Active Substance: POVIDONE-IODINE
     Indication: AMNESIA
     Route: 065
  4. FORASEQ [Suspect]
     Active Substance: BUDESONIDE\FORMOTEROL FUMARATE
     Dosage: 1 DF (1 CAPSULE OF EACH TREATMENT) (12/200 UG CAPSULE), QHS
     Route: 055
     Dates: start: 2009
  5. BETADINE [Concomitant]
     Active Substance: POVIDONE-IODINE
     Indication: DEMENTIA ALZHEIMER^S TYPE

REACTIONS (12)
  - Excoriation [Recovered/Resolved]
  - Loss of consciousness [Unknown]
  - Weight decreased [Unknown]
  - Road traffic accident [Not Recovered/Not Resolved]
  - Head injury [Unknown]
  - Spinal deformity [Recovered/Resolved]
  - Amnesia [Not Recovered/Not Resolved]
  - Back pain [Unknown]
  - Arthralgia [Unknown]
  - Injury [Unknown]
  - Bone marrow disorder [Recovered/Resolved]
  - Spinal pain [Recovered/Resolved]

NARRATIVE: CASE EVENT DATE: 20140905
